FAERS Safety Report 11467015 (Version 2)
Quarter: 2015Q3

REPORT INFORMATION
  Report Type: Spontaneous
  Country: AU (occurrence: AU)
  Receive Date: 20150908
  Receipt Date: 20150922
  Transmission Date: 20151125
  Serious: Yes (Other)
  Sender: FDA-Public Use
  Company Number: AU-PFIZER INC-2015261803

PATIENT
  Age: 63 Year
  Sex: Male
  Weight: 88 kg

DRUGS (29)
  1. SERETIDE [Concomitant]
     Active Substance: FLUTICASONE FUROATE\SALMETEROL XINAFOATE
     Dosage: 2 DF, UNK
  2. BRICANYL [Concomitant]
     Active Substance: TERBUTALINE SULFATE
     Dosage: UNK, AS NEEDED
  3. MSM [Concomitant]
     Active Substance: DIMETHYL SULFONE
  4. SELENIUM [Concomitant]
     Active Substance: SELENIUM
     Dosage: 1 DF, DAILY
  5. SHARK CARTILAGE [Concomitant]
     Active Substance: SHARK CARTILAGE\SHARK, UNSPECIFIED
  6. ST. JOHN^S WORT /01166801/ [Concomitant]
     Active Substance: ST. JOHN^S WORT
  7. VITAMIN D /00107901/ [Concomitant]
     Active Substance: ERGOCALCIFEROL
     Dosage: 1 DF, DAILY
  8. VALPAM [Concomitant]
     Indication: BLOOD PRESSURE FLUCTUATION
     Dosage: 10MG NOCTE
  9. VALPAM [Concomitant]
     Dosage: UNK
  10. VENTOLIN [Concomitant]
     Active Substance: ALBUTEROL SULFATE
     Dosage: 3-4 NEBULES / DAY; INHALER AS NEEDED
  11. VITAMIN E [Concomitant]
     Active Substance: .ALPHA.-TOCOPHEROL
  12. PROBIOTIC /06395501/ [Concomitant]
     Active Substance: BIFIDOBACTERIUM ANIMALIS SUBSP. LACTIS
  13. CHROMIUM [Concomitant]
     Active Substance: CHROMIC CHLORIDE\CHROMIUM
     Dosage: 1 DF, DAILY
  14. LYRICA [Suspect]
     Active Substance: PREGABALIN
     Indication: NEURALGIA
     Dosage: 225 MG, DAILY (75MG MANE AND 150MG NOCTE)
     Route: 048
     Dates: start: 20141128, end: 20150805
  15. GLIMEPIRIDE. [Concomitant]
     Active Substance: GLIMEPIRIDE
     Dosage: 2 MG, DAILY,MANE
  16. B COMPLEX (B50) [Concomitant]
  17. NEXIUM [Concomitant]
     Active Substance: ESOMEPRAZOLE MAGNESIUM
     Dosage: 40 MG, AS NEEDED
  18. ZYDOL /00599202/ [Concomitant]
     Active Substance: TRAMADOL HYDROCHLORIDE
     Dosage: 50 MG, NOCTE
  19. FISH OIL [Concomitant]
     Active Substance: FISH OIL
  20. FOLIC ACID. [Concomitant]
     Active Substance: FOLIC ACID
  21. ZINC [Concomitant]
     Active Substance: ZINC\ZINC CHLORIDE
     Dosage: UNK, AS NEEDED
  22. FORXIGA [Concomitant]
     Active Substance: DAPAGLIFLOZIN
     Dosage: 1 DF, DAILY (EVENING)
  23. ATROVENT [Concomitant]
     Active Substance: IPRATROPIUM BROMIDE
     Dosage: 3-4 NEBULES / DAY; INHALER PRN
  24. NASONEX AQUEOUS [Concomitant]
  25. PANADOL /00020001/ [Concomitant]
     Dosage: 1000 MG, AS NEEDED
  26. FML [Concomitant]
     Active Substance: FLUOROMETHOLONE
     Dosage: UNK, AS NEEDED
  27. ALPHA KERI BODY LOTION [Concomitant]
  28. CALCIUM ASCORBATE [Concomitant]
     Active Substance: CALCIUM ASCORBATE
  29. COD LIVER OIL [Concomitant]
     Active Substance: COD LIVER OIL

REACTIONS (9)
  - Dizziness [Recovered/Resolved]
  - Dry mouth [Not Recovered/Not Resolved]
  - Blood pressure increased [Recovered/Resolved]
  - Balance disorder [Recovered/Resolved]
  - Dyspnoea [Recovered/Resolved]
  - Diarrhoea [Recovered/Resolved]
  - Night sweats [Unknown]
  - Vision blurred [Unknown]
  - Chest discomfort [Recovered/Resolved]

NARRATIVE: CASE EVENT DATE: 20150805
